FAERS Safety Report 24568528 (Version 1)
Quarter: 2024Q4

REPORT INFORMATION
  Report Type: Spontaneous
  Country: CA (occurrence: CA)
  Receive Date: 20241031
  Receipt Date: 20241031
  Transmission Date: 20250114
  Serious: Yes (Other)
  Sender: ROCHE
  Company Number: CA-ROCHE-10000119810

PATIENT
  Age: 65 Year
  Sex: Female

DRUGS (18)
  1. RITUXIMAB [Suspect]
     Active Substance: RITUXIMAB
     Indication: Product used for unknown indication
     Route: 065
  2. ASPIRIN [Concomitant]
     Active Substance: ASPIRIN
  3. AMLODIPINE BESYLATE [Concomitant]
     Active Substance: AMLODIPINE BESYLATE
  4. BECLOMETHASONE [Concomitant]
     Active Substance: BECLOMETHASONE
  5. CALCIUM [Concomitant]
     Active Substance: CALCIUM
  6. CIPROFLOXACIN HYDROCHLORIDE [Concomitant]
     Active Substance: CIPROFLOXACIN HYDROCHLORIDE
  7. CLONAZEPAM [Concomitant]
     Active Substance: CLONAZEPAM
  8. ERGOCALCIFEROL [Concomitant]
     Active Substance: ERGOCALCIFEROL
  9. FOLIC ACID [Concomitant]
     Active Substance: FOLIC ACID
  10. HYDROMORPHONE [Concomitant]
     Active Substance: HYDROMORPHONE
  11. MONTELUKAST [Concomitant]
     Active Substance: MONTELUKAST
  12. MOXIFLOXACIN [Concomitant]
     Active Substance: MOXIFLOXACIN
  13. OMALIZUMAB [Concomitant]
     Active Substance: OMALIZUMAB
  14. PREDNISONE [Concomitant]
     Active Substance: PREDNISONE
  15. RISEDRONATE SODIUM [Concomitant]
     Active Substance: RISEDRONATE SODIUM
  16. ROSUVASTATIN [Concomitant]
     Active Substance: ROSUVASTATIN
  17. THEOPHYLLINE [Concomitant]
     Active Substance: THEOPHYLLINE
  18. TRAMADOL HYDROCHLORIDE [Concomitant]
     Active Substance: TRAMADOL HYDROCHLORIDE

REACTIONS (7)
  - Asthma [Recovering/Resolving]
  - Drug hypersensitivity [Recovering/Resolving]
  - Dyspnoea [Recovering/Resolving]
  - Oedema [Recovering/Resolving]
  - Pneumonia [Recovering/Resolving]
  - Vomiting [Recovering/Resolving]
  - Wheezing [Recovering/Resolving]
